FAERS Safety Report 23104028 (Version 1)
Quarter: 2023Q4

REPORT INFORMATION
  Report Type: Spontaneous
  Country: RU (occurrence: None)
  Receive Date: 20231025
  Receipt Date: 20231025
  Transmission Date: 20240110
  Serious: Yes (Hospitalization)
  Sender: FDA-Public Use
  Company Number: 2023A239987

PATIENT
  Sex: Female

DRUGS (4)
  1. DAPAGLIFLOZIN [Suspect]
     Active Substance: DAPAGLIFLOZIN
     Indication: Type 2 diabetes mellitus
     Route: 048
  2. DAPAGLIFLOZIN [Suspect]
     Active Substance: DAPAGLIFLOZIN
     Indication: Cardiac failure chronic
     Route: 048
  3. INSULIN NOS [Concomitant]
     Active Substance: INSULIN NOS
  4. EDARBI CLO [Concomitant]

REACTIONS (5)
  - Hyponatraemia [Recovered/Resolved]
  - Malaise [Recovered/Resolved]
  - Speech disorder [Recovered/Resolved]
  - Hypertension [Unknown]
  - Electrolyte imbalance [Unknown]
